FAERS Safety Report 5196027-5 (Version None)
Quarter: 2006Q4

REPORT INFORMATION
  Report Type: 
  Country: None (occurrence: None)
  Receive Date: 20061227
  Receipt Date: 20061211
  Transmission Date: 20070319
  Serious: Yes (Hospitalization, Other)
  Sender: FDA-Public Use
  Company Number: 150453ISR

PATIENT
  Age: 44 Year
  Sex: Female

DRUGS (1)
  1. TAMOXIFEN CITRATE [Suspect]
     Indication: BREAST CANCER
     Dosage: 20 MG (20 MG, 1 IN 1 D) ORAL
     Route: 048
     Dates: start: 20031101

REACTIONS (1)
  - PULMONARY SARCOIDOSIS [None]
